FAERS Safety Report 7542558-X (Version None)
Quarter: 2011Q2

REPORT INFORMATION
  Report Type: 
  Country: None (occurrence: None)
  Receive Date: 20110524
  Receipt Date: 20110210
  Transmission Date: 20111010
  Serious: No
  Sender: FDA-Public Use
  Company Number: 025657

PATIENT
  Sex: Female

DRUGS (1)
  1. CIMZIA [Suspect]
     Indication: CROHN'S DISEASE
     Dosage: (SUBCUTANEOUS)
     Route: 058
     Dates: start: 20100511

REACTIONS (5)
  - SLEEP DISORDER [None]
  - FEELING ABNORMAL [None]
  - SINUSITIS [None]
  - HEADACHE [None]
  - COUGH [None]
